FAERS Safety Report 8597962-8 (Version None)
Quarter: 2012Q3

REPORT INFORMATION
  Report Type: 
  Country: None (occurrence: None)
  Receive Date: 20120816
  Receipt Date: 20120807
  Transmission Date: 20120928
  Serious: Yes (Other)
  Sender: FDA-Public Use
  Company Number: AU-ASTRAZENECA-2012SE18714

PATIENT
  Age: 56 Year
  Sex: Female

DRUGS (4)
  1. MERREM [Suspect]
     Indication: SEPSIS
     Route: 042
     Dates: start: 20110601, end: 20110601
  2. VALPROATE SODIUM [Interacting]
     Route: 042
  3. VALPROATE SODIUM [Interacting]
     Indication: EPILEPSY
     Route: 048
  4. MERREM [Interacting]
     Route: 042
     Dates: start: 20110601, end: 20110601

REACTIONS (3)
  - DRUG INTERACTION [None]
  - GRAND MAL CONVULSION [None]
  - ANTICONVULSANT DRUG LEVEL DECREASED [None]
